FAERS Safety Report 5297365-8 (Version None)
Quarter: 2007Q2

REPORT INFORMATION
  Report Type: 
  Country: None (occurrence: None)
  Receive Date: 20070416
  Receipt Date: 20070403
  Transmission Date: 20071010
  Serious: Yes (Other)
  Sender: FDA-Public Use
  Company Number: PHBS2007JP03265

PATIENT
  Sex: Female

DRUGS (4)
  1. DIOVAN [Suspect]
     Indication: HYPERTENSION
     Dosage: 40 MG/DAY
     Route: 048
     Dates: start: 20070201
  2. BEZATOL - SLOW RELEASE [Suspect]
     Route: 048
  3. LASIX [Concomitant]
     Route: 048
  4. FIBRATES [Concomitant]
     Dates: end: 20070204

REACTIONS (1)
  - BLOOD CREATINE PHOSPHOKINASE INCREASED [None]
